FAERS Safety Report 10021801 (Version 5)
Quarter: 2014Q2

REPORT INFORMATION
  Report Type: Spontaneous
  Country: KR (occurrence: KR)
  Receive Date: 20140319
  Receipt Date: 20140512
  Transmission Date: 20141212
  Serious: Yes (Other)
  Sender: FDA-Public Use
  Company Number: KR-JNJFOC-20140308842

PATIENT
  Age: 3 Decade
  Sex: Female

DRUGS (3)
  1. STELARA [Suspect]
     Indication: PSORIASIS
     Route: 058
     Dates: start: 20140220
  2. STELARA [Suspect]
     Indication: PSORIASIS
     Route: 058
     Dates: start: 20140421
  3. STELARA [Suspect]
     Indication: PSORIASIS
     Route: 058
     Dates: start: 201308, end: 201308

REACTIONS (1)
  - Latent tuberculosis [Not Recovered/Not Resolved]
